FAERS Safety Report 7673821-X (Version None)
Quarter: 2011Q3

REPORT INFORMATION
  Report Type: 
  Country: None (occurrence: None)
  Receive Date: 20110810
  Receipt Date: 20110728
  Transmission Date: 20111222
  Serious: Yes (Death, Congenital Anomaly)
  Sender: FDA-Public Use
  Company Number: FR-SANOFI-AVENTIS-2011SA048238

PATIENT
  Age: 0 Day

DRUGS (5)
  1. RIFADIN [Suspect]
     Route: 064
     Dates: start: 20101126, end: 20110227
  2. RIMIFON [Suspect]
     Route: 064
  3. SOTALOL HCL [Suspect]
     Route: 064
  4. SIBELIUM [Suspect]
     Indication: MIGRAINE
     Route: 064
  5. RIFAMPIN AND ISONIAZID [Suspect]
     Route: 064
     Dates: start: 20101126, end: 20110227

REACTIONS (2)
  - CONGENITAL CENTRAL NERVOUS SYSTEM ANOMALY [None]
  - MATERNAL EXPOSURE DURING PREGNANCY [None]
